FAERS Safety Report 13034081 (Version 3)
Quarter: 2017Q2

REPORT INFORMATION
  Report Type: Spontaneous
  Country: JP (occurrence: JP)
  Receive Date: 20161216
  Receipt Date: 20170530
  Transmission Date: 20170830
  Serious: Yes (Death, Life-Threatening, Hospitalization)
  Sender: FDA-Public Use
  Company Number: JP-VALIDUS PHARMACEUTICALS LLC-JP-2016VAL003164

PATIENT
  Age: 77 Year
  Sex: Female

DRUGS (12)
  1. BETAMETHASONE. [Suspect]
     Active Substance: BETAMETHASONE
     Indication: DERMATOMYOSITIS
     Dosage: 0.1 MILLIGRAM(S)/KILOGRAM;DAILY
     Route: 065
  2. BETAMETHASONE. [Suspect]
     Active Substance: BETAMETHASONE
     Indication: INTERSTITIAL LUNG DISEASE
     Dosage: UNK
     Route: 065
  3. CYCLOPHOSPHAMIDE. [Suspect]
     Active Substance: CYCLOPHOSPHAMIDE
     Indication: DERMATOMYOSITIS
     Dosage: 500 MILLIGRAM(S);UNKNOWN
     Route: 042
  4. TACROLIMUS. [Suspect]
     Active Substance: TACROLIMUS
     Indication: DERMATOMYOSITIS
     Dosage: 3 MILLIGRAM(S);DAILY
     Route: 065
  5. LASIX [Suspect]
     Active Substance: FUROSEMIDE
     Indication: CARDIAC FAILURE
     Dosage: UNK
     Route: 065
  6. CYCLOPHOSPHAMIDE. [Suspect]
     Active Substance: CYCLOPHOSPHAMIDE
     Indication: INTERSTITIAL LUNG DISEASE
     Dosage: UNK
     Route: 042
  7. TACROLIMUS. [Suspect]
     Active Substance: TACROLIMUS
     Indication: INTERSTITIAL LUNG DISEASE
  8. CYCLOSPORIN A [Suspect]
     Active Substance: CYCLOSPORINE
     Indication: DERMATOMYOSITIS
     Dosage: UNK
     Route: 042
  9. FENOFIBRATE. [Suspect]
     Active Substance: FENOFIBRATE
     Indication: CHYLOTHORAX
     Dosage: UNK
     Route: 048
  10. OCTREOTIDE. [Suspect]
     Active Substance: OCTREOTIDE
     Indication: CHYLOTHORAX
     Dosage: UNK
     Route: 058
  11. CYCLOSPORIN A [Suspect]
     Active Substance: CYCLOSPORINE
     Indication: INTERSTITIAL LUNG DISEASE
  12. TOLVAPTAN [Suspect]
     Active Substance: TOLVAPTAN
     Indication: CARDIAC FAILURE
     Dosage: UNK
     Route: 065

REACTIONS (11)
  - Drug ineffective [Fatal]
  - Pleural effusion [Unknown]
  - Alveolar-arterial oxygen gradient increased [Fatal]
  - Pneumomediastinum [Fatal]
  - Condition aggravated [Fatal]
  - Interstitial lung disease [Fatal]
  - Off label use [Unknown]
  - Skin ulcer [Fatal]
  - Chylothorax [Recovering/Resolving]
  - Cardiac failure [Fatal]
  - Dermatomyositis [Fatal]
